FAERS Safety Report 5846654-4 (Version None)
Quarter: 2008Q3

REPORT INFORMATION
  Report Type: 
  Country: None (occurrence: None)
  Receive Date: 20080815
  Receipt Date: 20080806
  Transmission Date: 20090109
  Serious: Yes (Hospitalization)
  Sender: FDA-Public Use
  Company Number: B0528852A

PATIENT
  Age: 66 Year
  Sex: Male

DRUGS (1)
  1. DUTASTERIDE [Suspect]
     Indication: PROSTATE CANCER
     Dosage: .5MG PER DAY
     Route: 048
     Dates: start: 20040505, end: 20080519

REACTIONS (3)
  - HYDROCELE [None]
  - INTERVERTEBRAL DISC DISORDER [None]
  - SCROTAL SWELLING [None]
